APPROVED DRUG PRODUCT: RISEDRONATE SODIUM
Active Ingredient: RISEDRONATE SODIUM
Strength: 35MG
Dosage Form/Route: TABLET, DELAYED RELEASE;ORAL
Application: A203925 | Product #001
Applicant: SUN PHARMACEUTICAL INDUSTRIES LTD
Approved: Jul 9, 2019 | RLD: No | RS: No | Type: DISCN